FAERS Safety Report 10598134 (Version 1)
Quarter: 2014Q4

REPORT INFORMATION
  Report Type: Spontaneous
  Country: US (occurrence: None)
  Receive Date: 20141112
  Receipt Date: 20141112
  Transmission Date: 20150529
  Serious: No
  Sender: FDA-Public Use
  Company Number: US-017416

PATIENT
  Age: 70 Year
  Sex: Female
  Weight: 71.22 kg

DRUGS (1)
  1. PREPOPIK [Suspect]
     Active Substance: ANHYDROUS CITRIC ACID\MAGNESIUM OXIDE\SODIUM PICOSULFATE
     Indication: BOWEL PREPARATION
     Dosage: FIRST PACKET: 3:00 PM
     Route: 048
     Dates: start: 20141015

REACTIONS (1)
  - Rash [None]

NARRATIVE: CASE EVENT DATE: 20141015
